FAERS Safety Report 6065122-0 (Version None)
Quarter: 2009Q1

REPORT INFORMATION
  Report Type: 
  Country: None (occurrence: None)
  Receive Date: 20090204
  Receipt Date: 20090126
  Transmission Date: 20090719
  Serious: Yes (Death)
  Sender: FDA-Public Use
  Company Number: US-ELI_LILLY_AND_COMPANY-US200901005338

PATIENT
  Age: 53 Year
  Sex: Female

DRUGS (2)
  1. PROZAC [Suspect]
  2. MEPERIDINE W/PROMETHAZINE [Concomitant]

REACTIONS (3)
  - CARDIAC ARREST [None]
  - DEATH [None]
  - RESPIRATORY ARREST [None]
